FAERS Safety Report 20153233 (Version 2)
Quarter: 2021Q4

REPORT INFORMATION
  Report Type: Report from Study
  Country: IT (occurrence: IT)
  Receive Date: 20211206
  Receipt Date: 20211217
  Transmission Date: 20220303
  Serious: Yes (Life-Threatening)
  Sender: FDA-Public Use
  Company Number: IT-CELGENE-ITA-20211200960

PATIENT
  Age: 56 Year
  Sex: Male
  Weight: 62 kg

DRUGS (14)
  1. POMALIDOMIDE [Suspect]
     Active Substance: POMALIDOMIDE
     Indication: Primary amyloidosis
     Dosage: 3 MILLIGRAM
     Route: 048
     Dates: start: 20210924, end: 20211015
  2. POMALIDOMIDE [Suspect]
     Active Substance: POMALIDOMIDE
     Dosage: 2 MILLIGRAM
     Route: 048
     Dates: start: 2021
  3. DARATUMUMAB [Suspect]
     Active Substance: DARATUMUMAB
     Indication: Primary amyloidosis
     Dosage: 1800 MILLIGRAM
     Route: 058
     Dates: start: 20210827, end: 20211015
  4. DARATUMUMAB [Suspect]
     Active Substance: DARATUMUMAB
     Dosage: 1800 MILLIGRAM
     Route: 058
     Dates: start: 20211022
  5. DEXAMETHASONE [Suspect]
     Active Substance: DEXAMETHASONE
     Indication: Primary amyloidosis
     Route: 065
     Dates: start: 20210827
  6. TICLOPIDINE [Concomitant]
     Active Substance: TICLOPIDINE
     Indication: Product used for unknown indication
     Dosage: 250 MG/DIE
     Route: 065
     Dates: start: 20211015
  7. OMEPRAZOLE [Concomitant]
     Active Substance: OMEPRAZOLE
     Indication: Product used for unknown indication
     Dosage: 20 MG/DIE
     Route: 065
     Dates: start: 20211015
  8. ATORVASTATIN [Concomitant]
     Active Substance: ATORVASTATIN
     Indication: Product used for unknown indication
     Dosage: 20 MG/DIE
     Route: 065
     Dates: start: 20211015
  9. FOLIC ACID [Concomitant]
     Active Substance: FOLIC ACID
     Indication: Product used for unknown indication
     Dosage: 5 MG/DIE
     Route: 065
     Dates: start: 20211015
  10. IRON [Concomitant]
     Active Substance: IRON
     Indication: Product used for unknown indication
     Dosage: PER OS
     Route: 065
     Dates: start: 20211015
  11. FEBUXOSTAT [Concomitant]
     Active Substance: FEBUXOSTAT
     Indication: Product used for unknown indication
     Dosage: 40 MG/DIE
     Route: 065
     Dates: start: 20211015
  12. LEVOFLOXACIN [Concomitant]
     Active Substance: LEVOFLOXACIN
     Indication: Product used for unknown indication
     Dosage: 500 MG/DIE
     Route: 065
     Dates: start: 20211015
  13. SULFAMETHOXAZOLE\TRIMETHOPRIM [Concomitant]
     Active Substance: SULFAMETHOXAZOLE\TRIMETHOPRIM
     Indication: Product used for unknown indication
     Dosage: 1 CP/DIE
     Route: 065
     Dates: start: 20211015
  14. CHOLECALCIFEROL [Concomitant]
     Active Substance: CHOLECALCIFEROL
     Indication: Product used for unknown indication
     Route: 065
     Dates: start: 20211015

REACTIONS (1)
  - Neutropenia [Recovered/Resolved]

NARRATIVE: CASE EVENT DATE: 20211015
